FAERS Safety Report 4846974-6 (Version None)
Quarter: 2005Q4

REPORT INFORMATION
  Report Type: 
  Country: None (occurrence: None)
  Receive Date: 20051201
  Receipt Date: 20051118
  Transmission Date: 20060501
  Serious: Yes (Death, Hospitalization)
  Sender: FDA-Public Use
  Company Number: 219451

PATIENT
  Age: 73 Year
  Sex: Female

DRUGS (4)
  1. AVASTIN [Suspect]
     Indication: PANCREATIC CARCINOMA
     Dosage: 5 MG/KG,Q2W,INTRAVENOUS
     Route: 042
     Dates: start: 20050906, end: 20050921
  2. CAPECITABINE (CAPECITABINE) [Suspect]
     Indication: PANCREATIC CARCINOMA
     Dosage: 825 MG/M2,ORAL
     Route: 048
     Dates: start: 20050906, end: 20050921
  3. RADIOTHERAPY (RADIATION THERAPY) [Concomitant]
  4. NARCOTICS NOS (NARCOTIC NOS) [Concomitant]

REACTIONS (12)
  - ABDOMINAL DISTENSION [None]
  - ABDOMINAL PAIN [None]
  - COMPUTERISED TOMOGRAM ABDOMEN ABNORMAL [None]
  - CONFUSIONAL STATE [None]
  - GENERAL PHYSICAL HEALTH DETERIORATION [None]
  - HAEMATOCHEZIA [None]
  - INTRA-ABDOMINAL HAEMORRHAGE [None]
  - NAUSEA [None]
  - PANCREATITIS [None]
  - PERFORATION BILE DUCT [None]
  - SMALL INTESTINAL HAEMORRHAGE [None]
  - VOMITING [None]
